FAERS Safety Report 5245320-6 (Version None)
Quarter: 2007Q1

REPORT INFORMATION
  Report Type: 
  Country: None (occurrence: None)
  Receive Date: 20070223
  Receipt Date: 20070213
  Transmission Date: 20070707
  Serious: Yes (Other)
  Sender: FDA-Public Use
  Company Number: IE-GLAXOSMITHKLINE-B0458800A

PATIENT
  Age: 14 Year
  Sex: Female

DRUGS (1)
  1. SEROXAT [Suspect]
     Route: 048
     Dates: start: 19980101

REACTIONS (5)
  - DEPENDENCE [None]
  - DEPRESSION [None]
  - DRUG INEFFECTIVE [None]
  - DRUG WITHDRAWAL SYNDROME [None]
  - SOCIAL AVOIDANT BEHAVIOUR [None]
